FAERS Safety Report 24134350 (Version 1)
Quarter: 2024Q3

REPORT INFORMATION
  Report Type: Spontaneous
  Country: US (occurrence: US)
  Receive Date: 20240725
  Receipt Date: 20240725
  Transmission Date: 20241016
  Serious: Yes (Other)
  Sender: CHATTEM
  Company Number: US-OPELLA-2023OHG002828

PATIENT

DRUGS (1)
  1. MENTHOL [Suspect]
     Active Substance: MENTHOL
     Indication: Product used for unknown indication

REACTIONS (1)
  - Mesothelioma [Unknown]
